FAERS Safety Report 6571417-4 (Version None)
Quarter: 2010Q1

REPORT INFORMATION
  Report Type: 
  Country: None (occurrence: None)
  Receive Date: 20100205
  Receipt Date: 20100125
  Transmission Date: 20100710
  Serious: Yes (Hospitalization, Other)
  Sender: FDA-Public Use
  Company Number: US-PFIZER INC-2008036239

PATIENT
  Sex: Female
  Weight: 52.163 kg

DRUGS (2)
  1. DILANTIN-125 [Suspect]
     Indication: CONVULSION
     Dosage: 300 MG, 1X/DAY
  2. TRILEPTAL [Concomitant]
     Indication: EPILEPSY

REACTIONS (5)
  - ANTICONVULSANT DRUG LEVEL ABOVE THERAPEUTIC [None]
  - ANTICONVULSANT DRUG LEVEL DECREASED [None]
  - DYSPNOEA [None]
  - HYPERSOMNIA [None]
  - PYREXIA [None]
